FAERS Safety Report 5689859-8 (Version None)
Quarter: 2008Q1

REPORT INFORMATION
  Report Type: 
  Country: None (occurrence: None)
  Receive Date: 20080331
  Receipt Date: 20080331
  Transmission Date: 20080703
  Serious: Yes (Hospitalization)
  Sender: FDA-Public Use
  Company Number: None

PATIENT
  Sex: Male
  Weight: 108.0468 kg

DRUGS (2)
  1. GEMCITABINE [Suspect]
     Indication: PANCREATIC CARCINOMA
     Dosage: 1 GM/M2 Q3W AND 1 W REST IV DRIP
     Route: 041
     Dates: start: 20080123, end: 20080319
  2. LAPATINIB [Suspect]
     Indication: PANCREATIC CARCINOMA
     Dosage: 1500 MG DAILY
     Dates: start: 20080123, end: 20080326

REACTIONS (3)
  - SEPSIS [None]
  - STENT OCCLUSION [None]
  - STENT RELATED INFECTION [None]
